FAERS Safety Report 13647630 (Version 1)
Quarter: 2017Q2

REPORT INFORMATION
  Report Type: Spontaneous
  Country: CH (occurrence: CH)
  Receive Date: 20170613
  Receipt Date: 20170613
  Transmission Date: 20170830
  Serious: Yes (Hospitalization)
  Sender: FDA-Public Use
  Company Number: CH-TEVA-775617ISR

PATIENT
  Age: 79 Year
  Sex: Male
  Weight: 69.15 kg

DRUGS (4)
  1. PROSTAGUTT-F (HERBAL REMEDY) [Concomitant]
  2. MARCOUMAR [Suspect]
     Active Substance: PHENPROCOUMON
     Indication: MITRAL VALVE REPLACEMENT
     Route: 048
  3. STRUCTUM (CHONDROITINSULFAT 500 MG) [Concomitant]
  4. SIMVASTATIN ACTAVIS [Suspect]
     Active Substance: SIMVASTATIN

REACTIONS (5)
  - Hypotension [Recovered/Resolved]
  - Syncope [Recovered/Resolved]
  - Epistaxis [Recovered/Resolved]
  - Seizure [Recovered/Resolved]
  - Vomiting [Recovered/Resolved]

NARRATIVE: CASE EVENT DATE: 20170129
